FAERS Safety Report 16655341 (Version 1)
Quarter: 2019Q3

REPORT INFORMATION
  Report Type: Spontaneous
  Country: US (occurrence: US)
  Receive Date: 20190801
  Receipt Date: 20190801
  Transmission Date: 20191004
  Serious: Yes (Other)
  Sender: FDA-Public Use
  Company Number: US-ROCHE-2362622

PATIENT
  Age: 58 Year
  Sex: Female

DRUGS (11)
  1. PERJETA [Suspect]
     Active Substance: PERTUZUMAB
     Indication: OFF LABEL USE
  2. HERCEPTIN [Suspect]
     Active Substance: TRASTUZUMAB
     Indication: HER-2 POSITIVE BREAST CANCER
     Dosage: DATE OF LAST DOSE RECEVIED : 10/JUL/2019.
     Route: 041
     Dates: start: 201204, end: 20160712
  3. VINORELBINE [Concomitant]
     Active Substance: VINORELBINE TARTRATE
     Indication: BREAST CANCER METASTATIC
     Route: 065
     Dates: start: 201208, end: 20120801
  4. PACLITAXEL. [Concomitant]
     Active Substance: PACLITAXEL
     Indication: BREAST CANCER METASTATIC
     Route: 065
     Dates: start: 201206, end: 20120601
  5. HERCEPTIN [Suspect]
     Active Substance: TRASTUZUMAB
     Indication: OFF LABEL USE
     Route: 042
     Dates: end: 20190710
  6. PERJETA [Suspect]
     Active Substance: PERTUZUMAB
     Indication: HER-2 POSITIVE BREAST CANCER
     Dosage: DATE OF LAST DOSE (419 MG) RECEVIED : 19/JUL/2019 AND 10/JUL/2019
     Route: 065
     Dates: start: 20160712, end: 20160712
  7. PACLITAXEL. [Concomitant]
     Active Substance: PACLITAXEL
     Indication: OFF LABEL USE
  8. KADCYLA [Suspect]
     Active Substance: ADO-TRASTUZUMAB EMTANSINE
     Indication: OFF LABEL USE
  9. HERCEPTIN [Suspect]
     Active Substance: TRASTUZUMAB
     Route: 042
     Dates: start: 20160712
  10. VINORELBINE [Concomitant]
     Active Substance: VINORELBINE TARTRATE
     Indication: OFF LABEL USE
  11. KADCYLA [Suspect]
     Active Substance: ADO-TRASTUZUMAB EMTANSINE
     Indication: HER-2 POSITIVE BREAST CANCER
     Route: 065
     Dates: start: 20160712, end: 20160712

REACTIONS (6)
  - Paraesthesia [Unknown]
  - Treatment noncompliance [Unknown]
  - Hepatotoxicity [Unknown]
  - Hypoaesthesia [Unknown]
  - Neuropathy peripheral [Unknown]
  - Off label use [Unknown]

NARRATIVE: CASE EVENT DATE: 201206
